FAERS Safety Report 8278976 (Version 2)
Quarter: 2013Q1

REPORT INFORMATION
  Report Type: Spontaneous
  Country: US (occurrence: None)
  Receive Date: 20111130
  Receipt Date: 20121022
  Transmission Date: 20140127
  Serious: Yes (Hospitalization, Other)
  Sender: FDA-Public Use
  Company Number: AUR-APL-2011-05948

PATIENT
  Age: 65 Year
  Sex: Female

DRUGS (4)
  1. CITALOPRAM HYDROBROMIDE [Suspect]
     Indication: DEPRESSION
     Dosage: 20 MG, 1 D
  2. EPHEDRA INTERMEDIA STEM [Suspect]
     Indication: WEIGHT LOSS DIET
  3. LISINOPRIL (LISINOPRIL) [Concomitant]
  4. SIMVASTATIN [Concomitant]

REACTIONS (10)
  - Migraine [None]
  - Headache [None]
  - Hypertension [None]
  - Hypotension [None]
  - Blood cholesterol increased [None]
  - Low density lipoprotein increased [None]
  - Cerebral infarction [None]
  - Cerebral vasoconstriction [None]
  - Ischaemic stroke [None]
  - Hyperacusis [None]
